FAERS Safety Report 7080796-3 (Version None)
Quarter: 2010Q4

REPORT INFORMATION
  Report Type: 
  Country: None (occurrence: None)
  Receive Date: 20101103
  Receipt Date: 20101025
  Transmission Date: 20110411
  Serious: Yes (Other)
  Sender: FDA-Public Use
  Company Number: US-ASTRAZENECA-2009UW21851

PATIENT
  Sex: Female

DRUGS (4)
  1. PULMICORT [Suspect]
     Route: 055
  2. CRESTOR [Suspect]
     Indication: HYPERCHOLESTEROLAEMIA
     Route: 048
  3. HUMOLOG 75/35 [Concomitant]
     Indication: DIABETES MELLITUS
  4. DIOVAN [Concomitant]
     Indication: HYPERTENSION

REACTIONS (3)
  - BONE PAIN [None]
  - DIABETES MELLITUS [None]
  - MYALGIA [None]
